FAERS Safety Report 13508872 (Version 1)
Quarter: 2017Q2

REPORT INFORMATION
  Report Type: Spontaneous
  Country: ES (occurrence: ES)
  Receive Date: 20170503
  Receipt Date: 20170503
  Transmission Date: 20170830
  Serious: Yes (Other)
  Sender: FDA-Public Use
  Company Number: ES-MUNDIPHARMA DS AND PHARMACOVIGILANCE-GBR-2017-0044968

PATIENT
  Age: 77 Year
  Sex: Female

DRUGS (1)
  1. TARGIN [Suspect]
     Active Substance: NALOXONE HYDROCHLORIDE\OXYCODONE HYDROCHLORIDE
     Indication: INTERVERTEBRAL DISC PROTRUSION
     Dosage: 10 % (PERCENTAGE) [STRENGTH: 10MG/5MG]
     Route: 048
     Dates: start: 20170315

REACTIONS (1)
  - Hallucination [Recovered/Resolved]

NARRATIVE: CASE EVENT DATE: 20170328
